FAERS Safety Report 16139910 (Version 1)
Quarter: 2019Q2

REPORT INFORMATION
  Report Type: Spontaneous
  Country: US (occurrence: US)
  Receive Date: 20190329
  Receipt Date: 20190329
  Transmission Date: 20190711
  Serious: No
  Sender: FDA-Public Use
  Company Number: None

PATIENT
  Age: 86 Year
  Sex: Male
  Weight: 80 kg

DRUGS (1)
  1. DICLOFENAC GEL [Suspect]
     Active Substance: DICLOFENAC
     Indication: ARTHRALGIA
     Route: 061
     Dates: start: 20181218, end: 20190205

REACTIONS (1)
  - Rash [None]

NARRATIVE: CASE EVENT DATE: 20190205
